FAERS Safety Report 23045017 (Version 2)
Quarter: 2023Q4

REPORT INFORMATION
  Report Type: Spontaneous
  Country: US (occurrence: None)
  Receive Date: 20231009
  Receipt Date: 20231120
  Transmission Date: 20240109
  Serious: No
  Sender: FDA-Public Use
  Company Number: 2023A226424

PATIENT
  Age: 81 Year
  Sex: Male
  Weight: 103.9 kg

DRUGS (7)
  1. DALIRESP [Suspect]
     Active Substance: ROFLUMILAST
     Indication: Pruritus
     Route: 048
     Dates: start: 20230828
  2. DALIRESP [Suspect]
     Active Substance: ROFLUMILAST
     Indication: Pruritus
     Route: 048
     Dates: end: 20231002
  3. ENBREL [Concomitant]
     Active Substance: ETANERCEPT
  4. ALFUZOSIN [Concomitant]
     Active Substance: ALFUZOSIN
  5. BYSTOLIC [Concomitant]
     Active Substance: NEBIVOLOL HYDROCHLORIDE
  6. CRESTOR [Concomitant]
     Active Substance: ROSUVASTATIN CALCIUM
  7. PROTONIX [Concomitant]
     Active Substance: PANTOPRAZOLE SODIUM

REACTIONS (5)
  - Heart rate increased [Recovered/Resolved]
  - Feeling jittery [Recovered/Resolved]
  - Tremor [Recovered/Resolved]
  - Weight decreased [Recovered/Resolved]
  - Off label use [Unknown]

NARRATIVE: CASE EVENT DATE: 20230828
